FAERS Safety Report 23495349 (Version 2)
Quarter: 2024Q1

REPORT INFORMATION
  Report Type: Spontaneous
  Country: CA (occurrence: CA)
  Receive Date: 20240207
  Receipt Date: 20240306
  Transmission Date: 20240410
  Serious: Yes (Other)
  Sender: FDA-Public Use
  Company Number: CA-002147023-PHHY2014CA011613

PATIENT
  Age: 63 Year
  Sex: Male

DRUGS (14)
  1. METFORMIN [Suspect]
     Active Substance: METFORMIN HYDROCHLORIDE
     Indication: Product used for unknown indication
     Dosage: 250 MG, BID
     Route: 048
  2. SANDOSTATIN LAR DEPOT [Suspect]
     Active Substance: OCTREOTIDE ACETATE
     Indication: Acromegaly
     Dosage: 20 MG, Q4W
     Route: 030
     Dates: start: 20131203
  3. SANDOSTATIN LAR DEPOT [Suspect]
     Active Substance: OCTREOTIDE ACETATE
     Dosage: 30 MG, QMO (EVERY 4 WEEKS)
     Route: 030
     Dates: start: 20140421
  4. SANDOSTATIN LAR DEPOT [Suspect]
     Active Substance: OCTREOTIDE ACETATE
     Dosage: 40 MG, QMO
     Route: 030
     Dates: start: 20131203
  5. SANDOSTATIN LAR DEPOT [Suspect]
     Active Substance: OCTREOTIDE ACETATE
     Dosage: 40 MG, QMO
     Route: 030
  6. SANDOSTATIN LAR DEPOT [Suspect]
     Active Substance: OCTREOTIDE ACETATE
     Dosage: 50 MG, QMO
     Route: 030
  7. AMIODARONE [Concomitant]
     Active Substance: AMIODARONE
     Indication: Product used for unknown indication
     Dosage: UNK
     Route: 065
  8. ATORVASTATIN [Concomitant]
     Active Substance: ATORVASTATIN
     Indication: Product used for unknown indication
     Dosage: UNK
     Route: 065
  9. PERINDOPRIL [Concomitant]
     Active Substance: PERINDOPRIL
     Indication: Product used for unknown indication
     Dosage: 8 MG, QD
     Route: 048
  10. DOSTINEX [Concomitant]
     Active Substance: CABERGOLINE
     Indication: Product used for unknown indication
     Dosage: 0.35 MG, TIW
     Route: 048
  11. LASIX [Concomitant]
     Active Substance: FUROSEMIDE
     Indication: Product used for unknown indication
     Dosage: 40 MG, QD
     Route: 048
  12. BISOPROLOL FUMARATE [Concomitant]
     Active Substance: BISOPROLOL FUMARATE
     Indication: Product used for unknown indication
     Dosage: 5 MG, QD
     Route: 048
  13. SOMAVERT [Concomitant]
     Active Substance: PEGVISOMANT
     Indication: Product used for unknown indication
     Dosage: 10 MG, QD
     Route: 065
  14. XARELTO [Concomitant]
     Active Substance: RIVAROXABAN
     Indication: Product used for unknown indication
     Dosage: 20 MG, QD
     Route: 048

REACTIONS (10)
  - Blood pressure increased [Unknown]
  - Heart rate increased [Unknown]
  - Body temperature decreased [Unknown]
  - Arthralgia [Unknown]
  - Skin odour abnormal [Unknown]
  - Blood pressure decreased [Unknown]
  - Blood alkaline phosphatase increased [Unknown]
  - Erythema [Unknown]
  - Vein disorder [Unknown]
  - Mobility decreased [Unknown]

NARRATIVE: CASE EVENT DATE: 20140516
